FAERS Safety Report 10531152 (Version 3)
Quarter: 2015Q1

REPORT INFORMATION
  Report Type: Spontaneous
  Country: FR (occurrence: FR)
  Receive Date: 20141021
  Receipt Date: 20150213
  Transmission Date: 20150720
  Serious: Yes (Life-Threatening, Hospitalization, Other)
  Sender: FDA-Public Use
  Company Number: FR-TEVA-516388ISR

PATIENT
  Age: 42 Year
  Sex: Male

DRUGS (6)
  1. PREVISCAN [Concomitant]
     Active Substance: FLUINDIONE
     Dates: start: 2010
  2. PROZAC [Concomitant]
     Active Substance: FLUOXETINE HYDROCHLORIDE
     Indication: MULTIPLE SCLEROSIS
     Dosage: 20 MILLIGRAM DAILY;
     Route: 048
     Dates: start: 200405
  3. COPAXONE [Suspect]
     Active Substance: GLATIRAMER ACETATE
     Indication: MULTIPLE SCLEROSIS
     Route: 058
     Dates: start: 20091115, end: 20141017
  4. LYZANXIA [Concomitant]
     Indication: MULTIPLE SCLEROSIS
     Dosage: 2 DOSAGE FORMS DAILY;
     Route: 048
     Dates: start: 200405
  5. PROZAC [Concomitant]
     Active Substance: FLUOXETINE HYDROCHLORIDE
     Indication: PAIN
  6. LYZANXIA [Concomitant]
     Indication: PAIN

REACTIONS (19)
  - Loss of control of legs [Unknown]
  - Arthralgia [Not Recovered/Not Resolved]
  - Multiple sclerosis relapse [Unknown]
  - Phlebitis [Unknown]
  - Malaise [Unknown]
  - Muscular weakness [Not Recovered/Not Resolved]
  - Balance disorder [Not Recovered/Not Resolved]
  - Pulmonary embolism [Recovered/Resolved with Sequelae]
  - Myalgia [Not Recovered/Not Resolved]
  - Stress [Unknown]
  - Pulmonary infarction [Recovered/Resolved with Sequelae]
  - Burnout syndrome [Unknown]
  - Paraesthesia [Not Recovered/Not Resolved]
  - Ageusia [Not Recovered/Not Resolved]
  - Respiratory distress [Recovered/Resolved with Sequelae]
  - Pyrexia [Unknown]
  - Dizziness [Unknown]
  - Fatigue [Unknown]
  - Injection site bruising [Unknown]

NARRATIVE: CASE EVENT DATE: 201008
